FAERS Safety Report 23366721 (Version 3)
Quarter: 2024Q3

REPORT INFORMATION
  Report Type: Spontaneous
  Country: US (occurrence: US)
  Receive Date: 20240104
  Receipt Date: 20240906
  Transmission Date: 20241016
  Serious: Yes (Other)
  Sender: PFIZER
  Company Number: US-PFIZER INC-PV202400000867

PATIENT
  Age: 79 Year
  Sex: Female

DRUGS (1)
  1. IBRANCE [Suspect]
     Active Substance: PALBOCICLIB
     Indication: Breast cancer female
     Dosage: TAKE 1 TABLET (125 MG TOTAL) BY MOUTH DAILY FOR 21 DAYS THEN OFF FOR 7 DAYS
     Route: 048

REACTIONS (2)
  - Cataract [Unknown]
  - COVID-19 [Unknown]
